FAERS Safety Report 7039529 (Version 2)
Quarter: 2014Q3

REPORT INFORMATION
  Report Type: Spontaneous
  Country: US (occurrence: None)
  Receive Date: 20090622
  Receipt Date: 20140926
  Transmission Date: 20150326
  Serious: Yes (Other)
  Sender: FDA-Public Use
  Company Number: 2009S1004679

PATIENT
  Age: 75 Year
  Sex: Female
  Weight: 60 kg

DRUGS (12)
  1. DEMEROL (PETHIDINE HYDROCHLORIDE) [Concomitant]
  2. PREVACID [Concomitant]
     Active Substance: LANSOPRAZOLE
  3. IMODIUM [Concomitant]
     Active Substance: LOPERAMIDE HYDROCHLORIDE
  4. TOPROL (METOPROLOL SUCCINATE) [Concomitant]
  5. LIBRAX [Concomitant]
     Active Substance: CHLORDIAZEPOXIDE HYDROCHLORIDE\CLIDINIUM BROMIDE
  6. VERSED (MIDAZOLAM HYDROCHLORIDE) [Concomitant]
  7. METAMUCIL (PLANTAGO OVATA) [Concomitant]
  8. ADVIL (MEFENAMIC ACID) [Concomitant]
     Active Substance: MEFENAMIC ACID
  9. ASPIRIN (ACETYLSALICYLIC ACID) [Concomitant]
     Active Substance: ASPIRIN
  10. IBUPROFEN. [Concomitant]
     Active Substance: IBUPROFEN
  11. PHOSPHO-SODA [Suspect]
     Active Substance: SODIUM PHOSPHATE, DIBASIC\SODIUM PHOSPHATE, MONOBASIC
     Indication: COLONOSCOPY
     Dosage: ; PO
     Route: 048
     Dates: start: 20020410, end: 20020410
  12. LIPITOR [Concomitant]
     Active Substance: ATORVASTATIN CALCIUM

REACTIONS (14)
  - Nephrogenic anaemia [None]
  - Vomiting [None]
  - Blood potassium increased [None]
  - Nausea [None]
  - Urinary tract infection [None]
  - Renal failure acute [None]
  - Dysgeusia [None]
  - Aortic dilatation [None]
  - Cholelithiasis [None]
  - Diarrhoea [None]
  - Tubulointerstitial nephritis [None]
  - Hypertension [None]
  - Renal cyst [None]
  - Blood phosphorus increased [None]

NARRATIVE: CASE EVENT DATE: 200205
